FAERS Safety Report 6016618-9 (Version None)
Quarter: 2008Q4

REPORT INFORMATION
  Report Type: 
  Country: None (occurrence: None)
  Receive Date: 20081222
  Receipt Date: 20081212
  Transmission Date: 20090506
  Serious: Yes (Hospitalization, Other)
  Sender: FDA-Public Use
  Company Number: PHHY2008JP28273

PATIENT
  Age: 54 Year
  Sex: Male

DRUGS (8)
  1. EXJADE [Suspect]
     Indication: IRON OVERLOAD
     Dosage: 1000 MG/DAY
     Route: 048
     Dates: start: 20080616, end: 20080721
  2. EXJADE [Suspect]
     Dosage: 1500 MG/DAY
     Route: 048
     Dates: start: 20080722, end: 20081111
  3. EXJADE [Suspect]
     Dosage: 500 MG/DAY
     Route: 048
     Dates: start: 20081126
  4. ALFAROL [Concomitant]
     Indication: IRON OVERLOAD
     Dosage: 0.25 UG
     Route: 048
     Dates: start: 20060601
  5. BIOFERMIN [Concomitant]
     Dosage: 3 G
     Route: 048
     Dates: start: 20080818
  6. ALDACTONE [Concomitant]
     Indication: BLOOD CREATININE INCREASED
     Dosage: 25 MG/DAY
     Dates: start: 20060601
  7. METHYLTESTOSTERONE [Concomitant]
     Indication: BLOOD CREATININE INCREASED
     Dosage: 25 MG/DAY
     Dates: start: 20060601
  8. GRAN [Concomitant]
     Indication: IRON OVERLOAD
     Dosage: 75 UG
     Dates: start: 20060601

REACTIONS (4)
  - BLOOD CREATININE INCREASED [None]
  - BLOOD UREA INCREASED [None]
  - DIARRHOEA [None]
  - DUODENAL ULCER [None]
